FAERS Safety Report 9163122 (Version 9)
Quarter: 2013Q4

REPORT INFORMATION
  Report Type: Report from Study
  Country: CL (occurrence: CL)
  Receive Date: 20130314
  Receipt Date: 20131115
  Transmission Date: 20140711
  Serious: Yes (Life-Threatening, Hospitalization)
  Sender: FDA-Public Use
  Company Number: CL-ROCHE-1195285

PATIENT
  Age: 76 Year
  Sex: Male
  Weight: 72 kg

DRUGS (35)
  1. TRASTUZUMAB [Suspect]
     Indication: GASTRIC CANCER
     Dosage: LOADING DOSE:8MG/KG
     Route: 042
     Dates: start: 20121115
  2. TRASTUZUMAB [Suspect]
     Dosage: LAST DOSE PRIOR TO SAE ON 08/FEB/2013 AT A DOSE OF 750 MG
     Route: 042
  3. CAPECITABINE [Suspect]
     Indication: GASTRIC CANCER
     Dosage: LAST DOSE PRIOR TO SAE ON 08/FEB/2013 AT THE DOSE OF 3000 MG
     Route: 048
     Dates: start: 20121115
  4. CISPLATIN [Suspect]
     Indication: GASTRIC CANCER
     Dosage: LAST DOSE PRIOR TO SAE ON 08/FEB/2013 AT A DOSE OF 99 MG
     Route: 042
     Dates: start: 20121115
  5. NIFEDIPINE [Concomitant]
     Indication: HYPERTENSION
     Route: 065
     Dates: start: 1998, end: 20130910
  6. DOMPERIDONE [Concomitant]
     Indication: CONSTIPATION
     Route: 065
     Dates: start: 20121207, end: 20130910
  7. LACTULOSE [Concomitant]
     Indication: CONSTIPATION
     Route: 065
     Dates: start: 20121207, end: 20130910
  8. FOLIC ACID [Concomitant]
     Indication: ANAEMIA
     Route: 065
     Dates: start: 20130118, end: 20130612
  9. POTASSIUM CHLORIDE [Concomitant]
     Indication: DIARRHOEA
     Route: 065
     Dates: start: 20130304, end: 20130306
  10. POTASSIUM CHLORIDE [Concomitant]
     Route: 065
     Dates: start: 20130223, end: 20130303
  11. METAMIZOLE SODIUM [Concomitant]
     Indication: PYREXIA
     Route: 065
     Dates: start: 20130223, end: 20130223
  12. MAGNESIUM SULFATE [Concomitant]
     Indication: DIARRHOEA
     Route: 065
     Dates: start: 20130224, end: 20130301
  13. SODIUM CHLORIDE [Concomitant]
     Indication: DIARRHOEA
     Route: 065
     Dates: start: 20130223, end: 20130223
  14. CALCIUM GLUCONATE [Concomitant]
     Indication: HYPOCALCAEMIA
     Route: 065
     Dates: start: 20130225, end: 20130304
  15. OMEPRAZOLE [Concomitant]
     Indication: GASTRITIS
     Route: 065
     Dates: start: 20130202, end: 20130910
  16. OMEPRAZOLE [Concomitant]
     Route: 065
     Dates: start: 20130224, end: 20130228
  17. METRONIDAZOLE [Concomitant]
     Indication: NEUTROPENIA
     Route: 065
     Dates: start: 20130227, end: 20130312
  18. PREGABALIN [Concomitant]
     Indication: SKIN REACTION
     Route: 065
     Dates: start: 20130208, end: 20130612
  19. ONDANSETRON [Concomitant]
     Indication: NAUSEA
     Route: 065
     Dates: start: 20130224, end: 20130227
  20. ACETAMINOPHEN [Concomitant]
     Indication: PYREXIA
     Route: 065
     Dates: start: 20130224, end: 20130224
  21. ACETAMINOPHEN [Concomitant]
     Route: 065
     Dates: start: 20130224, end: 20130228
  22. PARGEVERINE [Concomitant]
     Indication: ABDOMINAL PAIN
     Route: 028
     Dates: start: 20130225, end: 20130226
  23. METAMIZOLE [Concomitant]
     Route: 065
     Dates: start: 20130225, end: 20130226
  24. PERENTERYL [Concomitant]
     Indication: DIARRHOEA
     Route: 065
     Dates: start: 20130226, end: 20130303
  25. PERENTERYL [Concomitant]
     Route: 065
     Dates: start: 20130304, end: 20130305
  26. HIDRASEC [Concomitant]
     Indication: DIARRHOEA
     Route: 065
     Dates: start: 20130227, end: 20130228
  27. HIDRASEC [Concomitant]
     Route: 065
     Dates: start: 20130303, end: 20130303
  28. HIDRASEC [Concomitant]
     Route: 065
     Dates: start: 20130304, end: 20130304
  29. HIDRASEC [Concomitant]
     Route: 065
     Dates: start: 20130306, end: 20130306
  30. RACECADOTRIL [Concomitant]
     Indication: DIARRHOEA
     Route: 065
     Dates: start: 20130302, end: 20130302
  31. BETAMETHASONE [Concomitant]
     Route: 065
     Dates: start: 20121115, end: 20130910
  32. CHLORPHENIRAMINE [Concomitant]
     Route: 065
     Dates: start: 20121115, end: 20130910
  33. ONDANSETRON [Concomitant]
     Route: 065
     Dates: start: 20121115, end: 20130321
  34. RANITIDINE [Concomitant]
     Route: 065
     Dates: start: 20121115, end: 20130910
  35. ACETAMINOPHEN [Concomitant]
     Indication: PYREXIA
     Route: 065
     Dates: start: 20130225, end: 20130228

REACTIONS (1)
  - Neutropenic sepsis [Recovered/Resolved]
